FAERS Safety Report 9279393 (Version 2)
Quarter: 2013Q2

REPORT INFORMATION
  Report Type: Spontaneous
  Country: US (occurrence: US)
  Receive Date: 20130508
  Receipt Date: 20130517
  Transmission Date: 20140414
  Serious: Yes (Hospitalization)
  Sender: FDA-Public Use
  Company Number: US-GILEAD-2013-0073406

PATIENT
  Sex: Male

DRUGS (5)
  1. LETAIRIS [Suspect]
     Indication: PULMONARY HYPERTENSION
     Dosage: 5 MG, QD
     Dates: start: 20110421
  2. LETAIRIS [Suspect]
     Indication: EXPOSURE TO TOXIC AGENT
  3. ADCIRCA [Concomitant]
  4. TYVASO [Concomitant]
  5. COUMADIN                           /00014802/ [Concomitant]

REACTIONS (1)
  - Heart rate irregular [Unknown]
